FAERS Safety Report 7941708-0 (Version None)
Quarter: 2011Q4

REPORT INFORMATION
  Report Type: 
  Country: None (occurrence: None)
  Receive Date: 20111128
  Receipt Date: 20111128
  Transmission Date: 20120403
  Serious: No
  Sender: FDA-Public Use
  Company Number: None

PATIENT
  Age: 55 Year
  Sex: Male
  Weight: 77 kg

DRUGS (1)
  1. VORICONAZOLE [Suspect]
     Indication: ANTIFUNGAL TREATMENT
     Dosage: 200MG
     Route: 048
     Dates: start: 20110721, end: 20110725

REACTIONS (2)
  - TRANSAMINASES INCREASED [None]
  - HALLUCINATION, VISUAL [None]
